FAERS Safety Report 6796323-1 (Version None)
Quarter: 2010Q2

REPORT INFORMATION
  Report Type: 
  Country: None (occurrence: None)
  Receive Date: 20100622
  Receipt Date: 20100611
  Transmission Date: 20101027
  Serious: Yes (Other)
  Sender: FDA-Public Use
  Company Number: 2010EU002551

PATIENT
  Age: 55 Year
  Sex: Female

DRUGS (6)
  1. TACROLIMUS [Suspect]
     Indication: IMMUNOSUPPRESSION
  2. SIROLIMUS (RAPAMUNE) [Suspect]
     Indication: IMMUNOSUPPRESSION
  3. PREDNISOLONE [Suspect]
     Indication: IMMUNOSUPPRESSION
     Dosage: 25 MG, /D; 2.5 MG, /D; 30 MG, /D
  4. PANTOPRAZOLE SODIUM [Suspect]
  5. FUROSEMIDE [Concomitant]
  6. METOPROLOL SUCCINATE [Concomitant]

REACTIONS (7)
  - CHILLS [None]
  - PYREXIA [None]
  - RENAL FAILURE ACUTE [None]
  - SCLEROSING ENCAPSULATING PERITONITIS [None]
  - TONGUE ULCERATION [None]
  - TUBULOINTERSTITIAL NEPHRITIS [None]
  - URETERIC STENOSIS [None]
